FAERS Safety Report 7492960-X (Version None)
Quarter: 2011Q2

REPORT INFORMATION
  Report Type: 
  Country: None (occurrence: None)
  Receive Date: 20110511
  Receipt Date: 20110503
  Transmission Date: 20111010
  Serious: Yes (Hospitalization, Other)
  Sender: FDA-Public Use
  Company Number: 2007SP000066

PATIENT
  Age: 34 Year
  Sex: Male
  Weight: 63 kg

DRUGS (3)
  1. PEG-INTRON [Suspect]
     Indication: HEPATITIS C
     Dosage: 100 MCG, QW, SC
     Route: 058
     Dates: start: 20061022, end: 20061217
  2. NIMED (NIMESULIDE /00845801/) [Suspect]
     Indication: MYALGIA
     Dosage: 100 MG, ONCE, PO
     Route: 048
     Dates: start: 20061215, end: 20061215
  3. CITALOPRAM [Concomitant]

REACTIONS (4)
  - ASPARTATE AMINOTRANSFERASE INCREASED [None]
  - GASTROOESOPHAGEAL REFLUX DISEASE [None]
  - ALANINE AMINOTRANSFERASE INCREASED [None]
  - DEPRESSION [None]
